FAERS Safety Report 15651811 (Version 1)
Quarter: 2018Q4

REPORT INFORMATION
  Report Type: Spontaneous
  Country: ES (occurrence: ES)
  Receive Date: 20181123
  Receipt Date: 20181123
  Transmission Date: 20190205
  Serious: Yes (Other)
  Sender: FDA-Public Use
  Company Number: ES-TEVA-2018-ES-978584

PATIENT
  Age: 26 Year
  Sex: Male

DRUGS (4)
  1. HIDROPOLIVIT [Concomitant]
     Dosage: 2 DOSAGE FORMS DAILY; EVERY 12 HOURS
     Route: 048
  2. FOLIC ACID. [Concomitant]
     Active Substance: FOLIC ACID
     Dosage: 1 DOSAGE FORMS DAILY; 1 PILL EVERY 24HOURS
     Route: 048
  3. TACROLIMUS. [Suspect]
     Active Substance: TACROLIMUS
     Dosage: 3 MILLIGRAM DAILY; EVERY 12 HOURS
     Route: 048
  4. METHYLPREDNISOLONE. [Suspect]
     Active Substance: METHYLPREDNISOLONE
     Dosage: 20 MILLIGRAM DAILY; EVERY 12HOURS
     Route: 048

REACTIONS (1)
  - Herpes simplex [Recovered/Resolved with Sequelae]
